FAERS Safety Report 16104223 (Version 4)
Quarter: 2020Q1

REPORT INFORMATION
  Report Type: Spontaneous
  Country: JP (occurrence: JP)
  Receive Date: 20190322
  Receipt Date: 20200312
  Transmission Date: 20200409
  Serious: Yes (Death, Hospitalization, Other)
  Sender: FDA-Public Use
  Company Number: JP-SAKK-2019SA073913AA

PATIENT
  Age: 79 Year
  Sex: Male
  Weight: 61 kg

DRUGS (15)
  1. AIMIX [Concomitant]
     Active Substance: AMLODIPINE BESYLATE\IRBESARTAN
     Indication: HYPERTENSION
     Dosage: 1 TABLET, QD
     Route: 048
     Dates: start: 2019
  2. NOVORAPID [Concomitant]
     Active Substance: INSULIN ASPART
     Indication: TYPE 2 DIABETES MELLITUS
     Dosage: DAILY DOSE: 22 UNITS, TID
     Route: 058
     Dates: start: 20150226
  3. PREDONINE [Concomitant]
     Active Substance: PREDNISOLONE
     Indication: DERMATITIS ATOPIC
     Dosage: DAILY DOSE: 5 MG - 45 MG, QD
     Route: 048
     Dates: start: 20150216
  4. TRAZENTA [Concomitant]
     Active Substance: LINAGLIPTIN
     Indication: TYPE 2 DIABETES MELLITUS
     Dosage: 5 MG, QD
     Route: 048
     Dates: start: 20170214
  5. INSULIN GLARGINE [Concomitant]
     Active Substance: INSULIN GLARGINE
     Indication: TYPE 2 DIABETES MELLITUS
     Dosage: 16 U, QD
     Route: 058
     Dates: start: 20160524
  6. GLYDIL [CLOBETASOL PROPIONATE] [Concomitant]
     Indication: DERMATITIS ATOPIC
     Dosage: UNK UNK, QD
     Route: 062
     Dates: start: 2019
  7. VENAPASTA [Concomitant]
     Indication: DERMATITIS ATOPIC
     Dosage: AS NEEDED BASIS
     Route: 062
     Dates: start: 2019
  8. ROSUVASTATIN [ROSUVASTATIN CALCIUM] [Concomitant]
     Active Substance: ROSUVASTATIN CALCIUM
     Indication: HYPERLIPIDAEMIA
     Dosage: 10 MG, QD
     Route: 048
     Dates: start: 20160621
  9. RUPAFIN [Concomitant]
     Active Substance: RUPATADINE FUMARATE
     Indication: DERMATITIS
     Dosage: 10 MG, QD
     Route: 048
     Dates: start: 20181211
  10. BAKTAR [Concomitant]
     Active Substance: SULFAMETHOXAZOLE\TRIMETHOPRIM
     Indication: PROPHYLAXIS
     Dosage: 1 TABLET, QD
     Route: 048
     Dates: start: 20150305
  11. TAKECAB [Concomitant]
     Active Substance: VONOPRAZAN FUMURATE
     Indication: PROPHYLAXIS AGAINST GASTROINTESTINAL ULCER
     Dosage: 10 MG, QD
     Route: 048
     Dates: start: 2019
  12. ALFAROL [Concomitant]
     Active Substance: ALFACALCIDOL
     Indication: OSTEOPOROSIS
     Dosage: 0.5 UG, QD
     Route: 048
     Dates: start: 20170602
  13. DERMOVATE [Concomitant]
     Active Substance: CLOBETASOL
     Indication: DERMATITIS ATOPIC
     Dosage: AS NEEDED BASIS
     Route: 062
     Dates: start: 2019
  14. DUPIXENT [Suspect]
     Active Substance: DUPILUMAB
     Indication: DERMATITIS ATOPIC
     Dosage: UNK
     Route: 058
     Dates: start: 201902
  15. PREDONINE [Concomitant]
     Active Substance: PREDNISOLONE
     Indication: INTERSTITIAL LUNG DISEASE

REACTIONS (3)
  - Pyrexia [Fatal]
  - Interstitial lung disease [Fatal]
  - Dyspnoea [Fatal]

NARRATIVE: CASE EVENT DATE: 20190310
